FAERS Safety Report 24925552 (Version 1)
Quarter: 2025Q1

REPORT INFORMATION
  Report Type: Report from Study
  Country: US (occurrence: US)
  Receive Date: 20250204
  Receipt Date: 20250204
  Transmission Date: 20250409
  Serious: No
  Sender: EXELIXIS
  Company Number: US-EXELIXIS-CABO-24076390

PATIENT
  Age: 76 Year
  Sex: Male

DRUGS (15)
  1. CABOMETYX [Suspect]
     Active Substance: CABOZANTINIB S-MALATE
     Indication: Thyroid cancer
     Dates: start: 20240403
  2. CABOMETYX [Suspect]
     Active Substance: CABOZANTINIB S-MALATE
     Dosage: 40 MG, QD
     Dates: start: 20240421, end: 202405
  3. CABOMETYX [Suspect]
     Active Substance: CABOZANTINIB S-MALATE
     Dosage: 20 MG, QD
     Dates: start: 20240612
  4. KEYTRUDA [Suspect]
     Active Substance: PEMBROLIZUMAB
     Indication: Thyroid cancer
     Dosage: UNK UNK, Q3WEEKS
     Route: 042
     Dates: start: 20240421
  5. ZOMETA [Suspect]
     Active Substance: ZOLEDRONIC ACID
     Indication: Thyroid cancer
     Route: 042
     Dates: start: 20240421
  6. WARFARIN [Concomitant]
     Active Substance: WARFARIN
  7. LIPITOR [Concomitant]
     Active Substance: ATORVASTATIN CALCIUM
  8. COREG [Concomitant]
     Active Substance: CARVEDILOL
  9. SYNTHROID [Concomitant]
     Active Substance: LEVOTHYROXINE SODIUM
  10. SODIUM CHLORIDE [Concomitant]
     Active Substance: SODIUM CHLORIDE
  11. MAGNESIUM OXIDE [Concomitant]
     Active Substance: MAGNESIUM OXIDE
  12. DIETARY SUPPLEMENT [Concomitant]
     Active Substance: DIETARY SUPPLEMENT
  13. ACETAMINOPHEN [Concomitant]
     Active Substance: ACETAMINOPHEN
  14. MIRALAX [Concomitant]
     Active Substance: POLYETHYLENE GLYCOL 3350
  15. CEPHALEXIN [Concomitant]
     Active Substance: CEPHALEXIN

REACTIONS (9)
  - Scab [Not Recovered/Not Resolved]
  - Thermal burn [Not Recovered/Not Resolved]
  - Thyroid hormones increased [Not Recovered/Not Resolved]
  - Skin ulcer [Not Recovered/Not Resolved]
  - Constipation [Not Recovered/Not Resolved]
  - Fatigue [Not Recovered/Not Resolved]
  - Pruritus [Not Recovered/Not Resolved]
  - Coagulation time prolonged [Not Recovered/Not Resolved]
  - White blood cell count decreased [Not Recovered/Not Resolved]

NARRATIVE: CASE EVENT DATE: 20240601
